FAERS Safety Report 17077927 (Version 1)
Quarter: 2019Q4

REPORT INFORMATION
  Report Type: Report from Study
  Country: DE (occurrence: DE)
  Receive Date: 20191126
  Receipt Date: 20191126
  Transmission Date: 20200122
  Serious: Yes (Other)
  Sender: FDA-Public Use
  Company Number: DE-BAUSCH-BL-2019-062476

PATIENT
  Sex: Female

DRUGS (5)
  1. OCRELIZUMAB. [Suspect]
     Active Substance: OCRELIZUMAB
     Indication: PRIMARY PROGRESSIVE MULTIPLE SCLEROSIS
     Dosage: STOPPED ON AN UNKNOWN DATE
     Route: 042
     Dates: start: 20171201
  2. L-THYROXINE (LEVOTHYROXINE) [Concomitant]
     Active Substance: LEVOTHYROXINE
     Route: 065
  3. L-THYROXINE (LEVOTHYROXINE) [Concomitant]
     Active Substance: LEVOTHYROXINE
     Indication: PRODUCT USED FOR UNKNOWN INDICATION
     Route: 065
  4. DEXA EDO [Suspect]
     Active Substance: DEXAMETHASONE SODIUM PHOSPHATE
     Indication: PRODUCT USED FOR UNKNOWN INDICATION
     Dosage: AT A DOSE 1(UNSPECIFIED UNIT) IN THE LEFT EYE
     Route: 065
  5. OCRELIZUMAB. [Suspect]
     Active Substance: OCRELIZUMAB
     Route: 042
     Dates: start: 20190122

REACTIONS (21)
  - Residual urine volume increased [Unknown]
  - Conjunctival hyperaemia [Not Recovered/Not Resolved]
  - Raynaud^s phenomenon [Not Recovered/Not Resolved]
  - Macular oedema [Not Recovered/Not Resolved]
  - Hair disorder [Recovered/Resolved]
  - Memory impairment [Not Recovered/Not Resolved]
  - Iritis [Recovering/Resolving]
  - Constipation [Recovered/Resolved]
  - Paraesthesia [Not Recovered/Not Resolved]
  - Muscle spasticity [Not Recovered/Not Resolved]
  - Central nervous system lesion [Not Recovered/Not Resolved]
  - Erythema [Recovered/Resolved]
  - Fatigue [Recovered/Resolved]
  - Blood cholesterol increased [Not Recovered/Not Resolved]
  - Fatigue [Unknown]
  - Onychoclasis [Recovered/Resolved]
  - Urinary tract infection [Recovered/Resolved]
  - Crying [Not Recovered/Not Resolved]
  - Hypertension [Recovered/Resolved]
  - Hyperacusis [Not Recovered/Not Resolved]
  - Vestibular disorder [Not Recovered/Not Resolved]

NARRATIVE: CASE EVENT DATE: 20171201
